FAERS Safety Report 7372832-1 (Version None)
Quarter: 2011Q1

REPORT INFORMATION
  Report Type: 
  Country: None (occurrence: None)
  Receive Date: 20110314
  Receipt Date: 20110304
  Transmission Date: 20110831
  Serious: Yes (Hospitalization)
  Sender: FDA-Public Use
  Company Number: ACO_22054_2011

PATIENT
  Age: 32 Year
  Sex: Female
  Weight: 47.6 kg

DRUGS (5)
  1. BACLOFEN [Concomitant]
  2. AMPYRA [Suspect]
     Indication: GAIT DISTURBANCE
     Dosage: 10 MG,  BID, ORAL
     Route: 048
     Dates: start: 20100101
  3. KLONOPIN [Concomitant]
  4. ZANAFLEX [Suspect]
     Indication: PRODUCT USED FOR UNKNOWN INDICATION
     Dosage: 10 MG, BID, ORAL
     Route: 048
     Dates: start: 20060101
  5. AMANTADINE HCL [Concomitant]

REACTIONS (1)
  - THROMBOSIS [None]
